FAERS Safety Report 6638578-X (Version None)
Quarter: 2010Q1

REPORT INFORMATION
  Report Type: 
  Country: None (occurrence: None)
  Receive Date: 20100312
  Receipt Date: 20100312
  Transmission Date: 20100710
  Serious: Yes (Hospitalization)
  Sender: FDA-Public Use
  Company Number: 2010BI001470

PATIENT
  Age: 54 Year
  Sex: 0

DRUGS (5)
  1. ZEVALIN [Suspect]
     Indication: NON-HODGKIN'S LYMPHOMA
     Dates: start: 20080327, end: 20080327
  2. ZEVALIN [Suspect]
     Indication: STEM CELL TRANSPLANT
     Dates: start: 20080327, end: 20080327
  3. RITUXIMAB [Concomitant]
  4. CYCLOSPORINE [Concomitant]
  5. FLUDARABINE PHOSPHATE [Concomitant]

REACTIONS (5)
  - COUGH [None]
  - OEDEMA PERIPHERAL [None]
  - PYREXIA [None]
  - STEM CELL TRANSPLANT [None]
  - VENOUS THROMBOSIS [None]
